FAERS Safety Report 17596726 (Version 3)
Quarter: 2020Q3

REPORT INFORMATION
  Report Type: Spontaneous
  Country: US (occurrence: US)
  Receive Date: 20200330
  Receipt Date: 20200724
  Transmission Date: 20201102
  Serious: No
  Sender: FDA-Public Use
  Company Number: US-GLAXOSMITHKLINE-US2020044408

PATIENT
  Sex: Female

DRUGS (1)
  1. ADVAIR DISKUS [Suspect]
     Active Substance: FLUTICASONE PROPIONATE\SALMETEROL XINAFOATE
     Indication: PRODUCT USED FOR UNKNOWN INDICATION
     Dosage: UNK, 250/50 MCG
     Route: 055
     Dates: start: 20200123

REACTIONS (8)
  - Asthma [Unknown]
  - Product complaint [Unknown]
  - Throat irritation [Unknown]
  - Intentional product misuse [Unknown]
  - Chest discomfort [Unknown]
  - Drug ineffective [Unknown]
  - Fatigue [Unknown]
  - Underdose [Unknown]
